FAERS Safety Report 12224810 (Version 3)
Quarter: 2016Q2

REPORT INFORMATION
  Report Type: Spontaneous
  Country: CH (occurrence: CH)
  Receive Date: 20160331
  Receipt Date: 20160525
  Transmission Date: 20160815
  Serious: Yes (Hospitalization)
  Sender: FDA-Public Use
  Company Number: CH-SA-2016SA060130

PATIENT
  Age: 54 Year
  Sex: Female

DRUGS (18)
  1. THYMOGLOBULIN [Suspect]
     Active Substance: LAPINE T-LYMPHOCYTE IMMUNE GLOBULIN
     Indication: BONE MARROW CONDITIONING REGIMEN
     Dosage: FORM: INFUSION AMPOULES
     Route: 065
     Dates: start: 20160302, end: 20160302
  2. THYMOGLOBULIN [Suspect]
     Active Substance: LAPINE T-LYMPHOCYTE IMMUNE GLOBULIN
     Indication: BONE MARROW CONDITIONING REGIMEN
     Dosage: FORM: INFUSION AMPOULES
     Route: 065
     Dates: start: 20160303, end: 20160303
  3. THYMOGLOBULIN [Suspect]
     Active Substance: LAPINE T-LYMPHOCYTE IMMUNE GLOBULIN
     Indication: BONE MARROW CONDITIONING REGIMEN
     Dosage: FORM: INFUSION AMPOULES
     Route: 065
     Dates: start: 20160302, end: 20160304
  4. CLARITINE [Concomitant]
     Active Substance: LORATADINE
     Indication: BONE MARROW CONDITIONING REGIMEN
     Route: 048
     Dates: start: 20160302, end: 20160304
  5. EMEND [Concomitant]
     Active Substance: APREPITANT
     Dosage: 125 MG ON DAY 1 AND 80 MG ON DAYS 2 AND 3
     Route: 048
     Dates: start: 20160302
  6. ZOFRAN [Concomitant]
     Active Substance: ONDANSETRON HYDROCHLORIDE
     Indication: BONE MARROW CONDITIONING REGIMEN
     Dosage: INFUSION AMPOULES
     Route: 048
     Dates: start: 20160302
  7. DAFALGAN [Concomitant]
     Active Substance: ACETAMINOPHEN
     Dosage: FREQUENCY: 4 EVERY
     Route: 048
     Dates: start: 20160229
  8. ALKERAN [Concomitant]
     Active Substance: MELPHALAN
     Indication: BONE MARROW CONDITIONING REGIMEN
     Dosage: VIALS
     Route: 041
     Dates: start: 20160305, end: 20160306
  9. URSOFALK [Concomitant]
     Active Substance: URSODIOL
     Route: 048
     Dates: start: 20160301
  10. NEXIUM [Concomitant]
     Active Substance: ESOMEPRAZOLE MAGNESIUM
     Route: 040
     Dates: start: 20160229
  11. FLUDARABINE PHOSPHATE. [Suspect]
     Active Substance: FLUDARABINE PHOSPHATE
     Indication: BONE MARROW CONDITIONING REGIMEN
     Route: 041
     Dates: start: 20160302, end: 20160306
  12. SOLU-MEDROL [Concomitant]
     Active Substance: METHYLPREDNISOLONE SODIUM SUCCINATE
     Indication: BONE MARROW CONDITIONING REGIMEN
     Route: 040
     Dates: start: 20160302, end: 20160304
  13. SODIUM CHLORIDE. [Concomitant]
     Active Substance: SODIUM CHLORIDE
     Indication: FLUID REPLACEMENT
     Route: 041
     Dates: start: 20160301
  14. BACTRIM [Concomitant]
     Active Substance: SULFAMETHOXAZOLE\TRIMETHOPRIM
     Dosage: INFUSION AMPOULES, BAGS
     Route: 040
  15. VALTREX [Concomitant]
     Active Substance: VALACYCLOVIR HYDROCHLORIDE
     Route: 048
     Dates: start: 20160303
  16. PRIVIGEN [Concomitant]
     Active Substance: HUMAN IMMUNOGLOBULIN G
     Route: 040
     Dates: start: 20160302, end: 20160304
  17. NEOMYCIN/POLYMYXIN B [Concomitant]
     Dosage: 3 EVERY 3 DAYS
     Route: 048
     Dates: start: 20160301
  18. HEPARIN [Concomitant]
     Active Substance: HEPARIN SODIUM
     Route: 041
     Dates: start: 20160301

REACTIONS (6)
  - Serum sickness-like reaction [Recovering/Resolving]
  - Hypotension [Recovered/Resolved]
  - Pyrexia [Recovered/Resolved]
  - Anaemia [Recovering/Resolving]
  - Acute kidney injury [Recovering/Resolving]
  - Product quality issue [Unknown]

NARRATIVE: CASE EVENT DATE: 20160302
